FAERS Safety Report 15772940 (Version 1)
Quarter: 2018Q4

REPORT INFORMATION
  Report Type: Spontaneous
  Country: PT (occurrence: PT)
  Receive Date: 20181228
  Receipt Date: 20181228
  Transmission Date: 20190205
  Serious: Yes (Other)
  Sender: FDA-Public Use
  Company Number: PT-TERSERA THERAPEUTICS LLC-TSR2018002840

PATIENT

DRUGS (2)
  1. NILUTAMIDE. [Suspect]
     Active Substance: NILUTAMIDE
     Indication: HORMONE THERAPY
     Dosage: 50 MILLIGRAM, Q8 HOURS
     Route: 048
     Dates: start: 201301, end: 201502
  2. ZOLADEX [Suspect]
     Active Substance: GOSERELIN ACETATE
     Indication: PROSTATE CANCER
     Dosage: GOSERELIN DOSAGE, UNIT: 10, 8
     Route: 058
     Dates: start: 201301

REACTIONS (3)
  - Metastases to liver [Not Recovered/Not Resolved]
  - Liver injury [Not Recovered/Not Resolved]
  - Intervertebral disc degeneration [Not Recovered/Not Resolved]

NARRATIVE: CASE EVENT DATE: 201502
